FAERS Safety Report 9249088 (Version 5)
Quarter: 2014Q2

REPORT INFORMATION
  Report Type: Spontaneous
  Country: US (occurrence: US)
  Receive Date: 20130423
  Receipt Date: 20140610
  Transmission Date: 20141212
  Serious: Yes (Hospitalization, Disabling, Other)
  Sender: FDA-Public Use
  Company Number: US-009507513-1304USA009077

PATIENT
  Sex: Female
  Weight: 63.49 kg

DRUGS (6)
  1. FOSAMAX [Suspect]
     Indication: OSTEOPOROSIS
     Dosage: 70 MG, UNK
     Route: 048
     Dates: start: 20030121, end: 20051209
  2. FOSAMAX [Suspect]
     Dosage: 70 MG, QW
     Route: 048
     Dates: start: 20070119
  3. ALENDRONATE SODIUM [Suspect]
     Indication: OSTEOPENIA
     Dosage: 70 MG, UNK
     Route: 048
     Dates: start: 20090503, end: 20110712
  4. FOSAMAX PLUS D [Suspect]
     Indication: OSTEOPENIA
     Dosage: 70/2800
     Route: 048
     Dates: start: 20080107, end: 20090503
  5. BONIVA [Suspect]
     Indication: OSTEOPENIA
     Dosage: 150 MG, UNK
     Route: 048
     Dates: start: 20051209, end: 20070119
  6. HORMONES (UNSPECIFIED) [Concomitant]
     Dosage: UNK
     Dates: start: 2001, end: 2011

REACTIONS (44)
  - Femur fracture [Recovered/Resolved]
  - Intramedullary rod insertion [Unknown]
  - Low turnover osteopathy [Not Recovered/Not Resolved]
  - Femur fracture [Unknown]
  - Foot fracture [Unknown]
  - Foot fracture [Recovered/Resolved]
  - Fear [Unknown]
  - Anxiety [Unknown]
  - Depression [Unknown]
  - Ligament sprain [Unknown]
  - Reproductive tract disorder [Unknown]
  - Osteosclerosis [Unknown]
  - Anaemia postoperative [Unknown]
  - Lymphadenopathy [Unknown]
  - Neck surgery [Unknown]
  - Palpitations [Unknown]
  - Flushing [Unknown]
  - Hypothyroidism [Unknown]
  - Hyperparathyroidism [Unknown]
  - Sinusitis [Unknown]
  - Arthritis [Unknown]
  - Osteoarthritis [Unknown]
  - Angiopathy [Unknown]
  - Spinal osteoarthritis [Unknown]
  - Intervertebral disc disorder [Unknown]
  - Nodule [Unknown]
  - Bowel movement irregularity [Unknown]
  - Aneurysm [Unknown]
  - Dry skin [Unknown]
  - Memory impairment [Unknown]
  - Unevaluable event [Unknown]
  - Rectocele [Unknown]
  - Bladder neck suspension [Unknown]
  - Atrophic vulvovaginitis [Unknown]
  - Bacterial vaginosis [Unknown]
  - Meniscus injury [Unknown]
  - Faecal incontinence [Unknown]
  - Menopausal symptoms [Unknown]
  - Dyspareunia [Unknown]
  - Treatment noncompliance [Unknown]
  - Musculoskeletal discomfort [Unknown]
  - Musculoskeletal pain [Unknown]
  - Gastrooesophageal reflux disease [Unknown]
  - Constipation [Unknown]
